FAERS Safety Report 7943570-9 (Version None)
Quarter: 2011Q4

REPORT INFORMATION
  Report Type: 
  Country: None (occurrence: None)
  Receive Date: 20111128
  Receipt Date: 20111117
  Transmission Date: 20120403
  Serious: Yes (Other)
  Sender: FDA-Public Use
  Company Number: CA-JNJFOC-20110208534

PATIENT
  Sex: Male
  Weight: 90 kg

DRUGS (2)
  1. REMICADE [Suspect]
     Indication: COLITIS ULCERATIVE
     Dosage: 6 VIALS EVERY 8 WEEKS
     Route: 042
     Dates: start: 20100901, end: 20101201
  2. REMICADE [Suspect]
     Route: 042

REACTIONS (2)
  - LUPUS-LIKE SYNDROME [None]
  - COLON OPERATION [None]
